FAERS Safety Report 6569320-9 (Version None)
Quarter: 2010Q1

REPORT INFORMATION
  Report Type: 
  Country: None (occurrence: None)
  Receive Date: 20100129
  Receipt Date: 20100111
  Transmission Date: 20100710
  Serious: Yes (Death)
  Sender: FDA-Public Use
  Company Number: 005417

PATIENT
  Age: 47 Year
  Sex: Female

DRUGS (7)
  1. ALPRAZOLAM [Suspect]
  2. PREGABALIN [Suspect]
  3. HYDROXYZINE [Suspect]
  4. ACETAMINOPHEN W/BUTALBITAL [Suspect]
  5. MIRTAZAPINE [Suspect]
  6. LEVOTHYROXINE SODIUM [Suspect]
  7. BACLOFEN [Suspect]

REACTIONS (1)
  - COMPLETED SUICIDE [None]
